FAERS Safety Report 5391641-6 (Version None)
Quarter: 2007Q3

REPORT INFORMATION
  Report Type: 
  Country: None (occurrence: None)
  Receive Date: 20070719
  Receipt Date: 20070717
  Transmission Date: 20080115
  Serious: Yes (Hospitalization)
  Sender: FDA-Public Use
  Company Number: FR-BOEHRINGER INGELHEIM PHARMACEUTICALS, INC.-2006-FF-00739FF

PATIENT
  Sex: Female
  Weight: 2.75 kg

DRUGS (8)
  1. VIRAMUNE [Suspect]
     Indication: DRUG EXPOSURE DURING PREGNANCY
     Dosage: TRANSPLACENTAL TREATMENT
     Route: 015
     Dates: start: 20040112
  2. VIRAMUNE [Suspect]
     Dosage: SINGLE DOSE OF 200 MG
     Route: 048
     Dates: start: 20060622
  3. VIRACEPT [Concomitant]
     Dosage: 80MG/KG
     Route: 048
  4. CRIXIVAN [Concomitant]
     Indication: DRUG EXPOSURE DURING PREGNANCY
     Dosage: TRANSPLACENTAL EXPOSURE
     Route: 015
     Dates: start: 20040112
  5. NORVIR [Concomitant]
     Indication: DRUG EXPOSURE DURING PREGNANCY
     Dosage: TRANSPLACENTAL EXPOSURE
     Route: 015
     Dates: start: 20040112
  6. COMBIVIR [Concomitant]
     Indication: DRUG EXPOSURE DURING PREGNANCY
     Dosage: TRANSPLACENTAL EXPOSURE
     Route: 015
     Dates: start: 20040112
  7. RETROVIR [Concomitant]
     Indication: DRUG EXPOSURE DURING PREGNANCY
     Dosage: 200MG/ML INFUSION DURING DELIVERY
     Route: 015
     Dates: start: 20060615
  8. ZIDOVUDINE [Concomitant]
     Route: 048

REACTIONS (5)
  - ACCIDENTAL OVERDOSE [None]
  - ANAEMIA [None]
  - DRUG TOXICITY [None]
  - HYPERLACTACIDAEMIA [None]
  - NEUTROPENIA [None]
